FAERS Safety Report 15075195 (Version 1)
Quarter: 2018Q2

REPORT INFORMATION
  Report Type: Report from Study
  Country: US (occurrence: US)
  Receive Date: 20180627
  Receipt Date: 20180627
  Transmission Date: 20180711
  Serious: No
  Sender: FDA-Public Use
  Company Number: US-SAOL THERAPEUTICS-2017SAO01591

PATIENT
  Age: 53 Year
  Sex: Female

DRUGS (17)
  1. FENTANYL. [Suspect]
     Active Substance: FENTANYL
     Dosage: 248.09 ?G, \DAY MAX
     Route: 037
     Dates: start: 20170919
  2. BUPIVACAINE. [Suspect]
     Active Substance: BUPIVACAINE
     Dosage: 20.36 MG, \DAY MAX
     Route: 037
     Dates: end: 20170919
  3. BUPIVACAINE. [Suspect]
     Active Substance: BUPIVACAINE
     Dosage: 24.809 MG, \DAY MAX
     Route: 037
     Dates: start: 20170919
  4. FENTANYL. [Suspect]
     Active Substance: FENTANYL
     Dosage: 130.8 ?G, \DAY
     Route: 037
     Dates: end: 20170919
  5. FENTANYL. [Suspect]
     Active Substance: FENTANYL
     Dosage: 203.6 ?G, \DAY MAX
     Route: 037
     Dates: end: 20170919
  6. FENTANYL. [Suspect]
     Active Substance: FENTANYL
     Dosage: 160.79 ?G, \DAY
     Route: 037
     Dates: start: 20170919
  7. DROPERIDOL. [Suspect]
     Active Substance: DROPERIDOL
     Dosage: 169.67 ?G, \DAY MAX
     Route: 037
     Dates: end: 20170919
  8. BUPIVACAINE. [Suspect]
     Active Substance: BUPIVACAINE
     Dosage: 13.08 MG, \DAY
     Route: 037
     Dates: end: 20170919
  9. DROPERIDOL. [Suspect]
     Active Substance: DROPERIDOL
     Dosage: 133.99 ?G, \DAY
     Route: 037
     Dates: start: 20170919
  10. BACLOFEN. [Suspect]
     Active Substance: BACLOFEN
     Dosage: 87.2 ?G, \DAY
     Route: 037
     Dates: end: 20170919
  11. BUPIVACAINE. [Suspect]
     Active Substance: BUPIVACAINE
     Dosage: 16.079 MG, \DAY
     Route: 037
     Dates: start: 20170919
  12. DROPERIDOL. [Suspect]
     Active Substance: DROPERIDOL
     Dosage: 206.74 ?G, \DAY MAX
     Route: 037
     Dates: start: 20170919
  13. BACLOFEN. [Suspect]
     Active Substance: BACLOFEN
     Dosage: 135.74 ?G, \DAY MAX
     Route: 037
     Dates: end: 20170919
  14. BACLOFEN. [Suspect]
     Active Substance: BACLOFEN
     Dosage: 107.19 ?G, \DAY
     Route: 037
     Dates: start: 20170919
  15. DROPERIDOL. [Suspect]
     Active Substance: DROPERIDOL
     Dosage: 109 ?G, \DAY
     Route: 037
     Dates: end: 20170919
  16. BACLOFEN. [Suspect]
     Active Substance: BACLOFEN
     Dosage: 165.39 ?G, \DAY MAX
     Route: 037
     Dates: start: 20170919
  17. HYDROMORPHONE [Suspect]
     Active Substance: HYDROMORPHONE

REACTIONS (4)
  - Pain [Recovered/Resolved]
  - Lethargy [Recovered/Resolved]
  - Unevaluable event [Unknown]
  - Sedation [Recovered/Resolved]

NARRATIVE: CASE EVENT DATE: 20170919
